FAERS Safety Report 10400238 (Version 6)
Quarter: 2015Q3

REPORT INFORMATION
  Report Type: Report from Study
  Country: US (occurrence: US)
  Receive Date: 20140821
  Receipt Date: 20150821
  Transmission Date: 20151125
  Serious: Yes (Other)
  Sender: FDA-Public Use
  Company Number: US-SA-2014SA111628

PATIENT
  Age: 60 Year
  Sex: Female

DRUGS (1)
  1. AUBAGIO [Suspect]
     Active Substance: TERIFLUNOMIDE
     Indication: MULTIPLE SCLEROSIS
     Route: 048
     Dates: start: 20130212

REACTIONS (25)
  - Upper limb fracture [Unknown]
  - Dizziness [Unknown]
  - Fatigue [Unknown]
  - Humerus fracture [Unknown]
  - Clavicle fracture [Unknown]
  - Back pain [Unknown]
  - Walking aid user [Unknown]
  - Carpal tunnel syndrome [Unknown]
  - Vision blurred [Unknown]
  - Hyperhidrosis [Unknown]
  - Fall [Unknown]
  - Visual impairment [Unknown]
  - Hemiparesis [Unknown]
  - Hearing impaired [Unknown]
  - Stress [Unknown]
  - Memory impairment [Unknown]
  - Somnolence [Unknown]
  - Hepatic enzyme increased [Unknown]
  - Pain in extremity [Unknown]
  - Arthralgia [Unknown]
  - Haematoma [Unknown]
  - Immunodeficiency [Unknown]
  - Multiple sclerosis relapse [Unknown]
  - Neck pain [Unknown]
  - Nausea [Unknown]

NARRATIVE: CASE EVENT DATE: 2014
